FAERS Safety Report 8916248 (Version 1)
Quarter: 2012Q4

REPORT INFORMATION
  Report Type: 
  Country: HR (occurrence: HR)
  Receive Date: 20121120
  Receipt Date: 20121120
  Transmission Date: 20130627
  Serious: Yes (Hospitalization)
  Sender: FDA-Public Use
  Company Number: HR-GLAXOSMITHKLINE-B0846139A

PATIENT
  Age: 72 Year
  Sex: Female

DRUGS (1)
  1. ACICLOVIR [Suspect]
     Indication: HERPES ZOSTER
     Dosage: 800MG Twice per day
     Route: 048

REACTIONS (2)
  - Neurotoxicity [Unknown]
  - Transient ischaemic attack [Unknown]
